FAERS Safety Report 6323080-5 (Version None)
Quarter: 2009Q3

REPORT INFORMATION
  Report Type: 
  Country: None (occurrence: None)
  Receive Date: 20090824
  Receipt Date: 20090818
  Transmission Date: 20100115
  Serious: Yes (Other)
  Sender: FDA-Public Use
  Company Number: US-AVENTIS-200917445US

PATIENT
  Sex: Male

DRUGS (2)
  1. LOVENOX [Suspect]
     Dosage: DOSE: UNK
  2. ANAESTHETICS [Concomitant]
     Dosage: DOSE: UNK

REACTIONS (1)
  - SPINAL HAEMATOMA [None]
